FAERS Safety Report 5527242-6 (Version None)
Quarter: 2007Q4

REPORT INFORMATION
  Report Type: 
  Country: None (occurrence: None)
  Receive Date: 20071121
  Receipt Date: 20071116
  Transmission Date: 20080405
  Serious: Yes (Other)
  Sender: FDA-Public Use
  Company Number: 2007325631

PATIENT
  Sex: Female

DRUGS (1)
  1. LISTERINE AGENT COOL BLUE BUBBLE BLAST (NO ACTIVE INGREDIENT) [Suspect]
     Dosage: ORAL
     Route: 048

REACTIONS (1)
  - PHARYNGITIS STREPTOCOCCAL [None]
